FAERS Safety Report 5987992-4 (Version None)
Quarter: 2008Q4

REPORT INFORMATION
  Report Type: 
  Country: None (occurrence: None)
  Receive Date: 20081210
  Receipt Date: 20080415
  Transmission Date: 20090506
  Serious: No
  Sender: FDA-Public Use
  Company Number: US-AMGEN-KDL273054

PATIENT
  Sex: Female

DRUGS (4)
  1. ENBREL [Suspect]
     Indication: RHEUMATOID ARTHRITIS
     Route: 058
     Dates: start: 20000501
  2. TRAZODONE HCL [Concomitant]
  3. MOTRIN [Concomitant]
  4. ZOLOFT [Concomitant]

REACTIONS (6)
  - ARTHRALGIA [None]
  - ARTHROPATHY [None]
  - CYST [None]
  - FALL [None]
  - LIGAMENT RUPTURE [None]
  - MENISCUS LESION [None]
